FAERS Safety Report 7324620-X (Version None)
Quarter: 2011Q1

REPORT INFORMATION
  Report Type: 
  Country: None (occurrence: None)
  Receive Date: 20110301
  Receipt Date: 20110216
  Transmission Date: 20110831
  Serious: Yes (Life-Threatening, Hospitalization)
  Sender: FDA-Public Use
  Company Number: GB-MYLANLABS-2011S1003222

PATIENT
  Age: 79 Year
  Sex: Female

DRUGS (18)
  1. ATORVASTATIN [Concomitant]
     Indication: HYPERLIPIDAEMIA
     Route: 048
  2. FUROSEMIDE [Concomitant]
     Indication: HYPERTENSION
     Route: 048
  3. NITROGLYCERIN [Concomitant]
     Indication: ANGINA PECTORIS
  4. SALBUTAMOL [Concomitant]
     Indication: CHRONIC OBSTRUCTIVE PULMONARY DISEASE
  5. WARFARIN [Concomitant]
     Indication: ATRIAL FIBRILLATION
     Route: 048
  6. DOXYCYCLINE [Concomitant]
     Indication: CHRONIC OBSTRUCTIVE PULMONARY DISEASE
     Route: 048
  7. LANSOPRAZOLE [Concomitant]
     Indication: PRODUCT USED FOR UNKNOWN INDICATION
  8. PREDNISOLONE [Concomitant]
     Indication: CHRONIC OBSTRUCTIVE PULMONARY DISEASE
  9. CLARITHROMYCIN [Suspect]
     Indication: LOWER RESPIRATORY TRACT INFECTION
     Route: 048
     Dates: start: 20110113
  10. DIGOXIN [Suspect]
     Indication: CHRONIC OBSTRUCTIVE PULMONARY DISEASE
     Route: 048
  11. IPRATROPIUM BROMIDE [Concomitant]
     Indication: CHRONIC OBSTRUCTIVE PULMONARY DISEASE
  12. TRIMETHOPRIM [Suspect]
     Indication: LOWER RESPIRATORY TRACT INFECTION
     Route: 048
     Dates: start: 20110107, end: 20110113
  13. BISOPROLOL FUMARATE [Concomitant]
  14. AMLODIPINE [Concomitant]
     Indication: HYPERTENSION
     Route: 048
  15. SERETIDE [Concomitant]
     Indication: CHRONIC OBSTRUCTIVE PULMONARY DISEASE
  16. TRIMETHOPRIM [Suspect]
     Indication: CHRONIC OBSTRUCTIVE PULMONARY DISEASE
     Route: 048
     Dates: start: 20110107, end: 20110113
  17. BISOPROLOL FUMARATE [Concomitant]
     Indication: ACUTE CORONARY SYNDROME
  18. GLICLAZIDE [Concomitant]
     Indication: TYPE 2 DIABETES MELLITUS

REACTIONS (11)
  - HYPERSENSITIVITY [None]
  - ATRIAL FIBRILLATION [None]
  - DIARRHOEA [None]
  - TOXICITY TO VARIOUS AGENTS [None]
  - UNRESPONSIVE TO STIMULI [None]
  - BRADYCARDIA [None]
  - HYPOTHERMIA [None]
  - DECREASED APPETITE [None]
  - CONFUSIONAL STATE [None]
  - DRUG INTERACTION [None]
  - MALAISE [None]
